FAERS Safety Report 4653020-6 (Version None)
Quarter: 2005Q2

REPORT INFORMATION
  Report Type: 
  Country: None (occurrence: None)
  Receive Date: 20050505
  Receipt Date: 20050422
  Transmission Date: 20051028
  Serious: Yes (Disabling, Congenital Anomaly)
  Sender: FDA-Public Use
  Company Number: FR-BRISTOL-MYERS SQUIBB COMPANY-12948022

PATIENT
  Sex: Male
  Weight: 4 kg

DRUGS (6)
  1. GLUCOPHAGE [Suspect]
     Route: 064
     Dates: start: 20040525, end: 20040630
  2. PROGYNOVA [Suspect]
     Route: 064
     Dates: start: 20040525, end: 20040630
  3. VIVALAN [Suspect]
     Route: 064
     Dates: start: 20040525, end: 20040630
  4. ANDROCUR [Suspect]
     Route: 064
     Dates: start: 20040525, end: 20040630
  5. MIXTARD HUMAN 70/30 [Concomitant]
     Route: 064
  6. ACTRAPID [Concomitant]
     Route: 064

REACTIONS (2)
  - PREGNANCY [None]
  - RENAL AGENESIS [None]
